FAERS Safety Report 16584146 (Version 1)
Quarter: 2019Q3

REPORT INFORMATION
  Report Type: Spontaneous
  Country: US (occurrence: US)
  Receive Date: 20190716
  Receipt Date: 20190716
  Transmission Date: 20191004
  Serious: Yes (Life-Threatening, Hospitalization, Disabling)
  Sender: FDA-Public Use
  Company Number: None

PATIENT
  Age: 39 Year
  Sex: Female
  Weight: 119.25 kg

DRUGS (5)
  1. TYLENOL [Concomitant]
     Active Substance: ACETAMINOPHEN
  2. GABAPENTON [Concomitant]
  3. ALLEGRA(OTC) 180 MG [Concomitant]
  4. BUPROPRION XL [Suspect]
     Active Substance: BUPROPION
     Indication: ANXIETY DISORDER
     Route: 048
     Dates: start: 20180906
  5. BUPROPION XL [Concomitant]
     Active Substance: BUPROPION

REACTIONS (2)
  - Intestinal perforation [None]
  - Diverticulitis [None]

NARRATIVE: CASE EVENT DATE: 20190521
